FAERS Safety Report 23826854 (Version 1)
Quarter: 2024Q2

REPORT INFORMATION
  Report Type: Spontaneous
  Country: US (occurrence: US)
  Receive Date: 20240507
  Receipt Date: 20240507
  Transmission Date: 20240716
  Serious: No
  Sender: FDA-Public Use
  Company Number: US-BRISTOL-MYERS SQUIBB COMPANY-2024-069395

PATIENT
  Age: 61 Year
  Sex: Male

DRUGS (2)
  1. OPDIVO [Suspect]
     Active Substance: NIVOLUMAB
     Indication: Colon neoplasm
     Route: 042
     Dates: start: 20240422, end: 20240422
  2. YERVOY [Suspect]
     Active Substance: IPILIMUMAB
     Indication: Colon neoplasm
     Route: 042
     Dates: start: 20240422, end: 20240422

REACTIONS (1)
  - Illness [Unknown]

NARRATIVE: CASE EVENT DATE: 20240101
